FAERS Safety Report 19304113 (Version 1)
Quarter: 2021Q2

REPORT INFORMATION
  Report Type: Report from Study
  Country: BR (occurrence: BR)
  Receive Date: 20210525
  Receipt Date: 20210525
  Transmission Date: 20210717
  Serious: Yes (Other)
  Sender: FDA-Public Use
  Company Number: NVSC2021BR109567

PATIENT
  Age: 43 Year
  Sex: Female
  Weight: 92 kg

DRUGS (3)
  1. RIBOCICLIB. [Concomitant]
     Active Substance: RIBOCICLIB
     Indication: PRODUCT USED FOR UNKNOWN INDICATION
     Dosage: APPROXIMATELY, 26 MAR 2021
     Route: 065
     Dates: start: 20210326
  2. FEMARA [Suspect]
     Active Substance: LETROZOLE
     Indication: PRODUCT USED FOR UNKNOWN INDICATION
     Dosage: 10AM
     Route: 065
  3. RIBOCICLIB. [Concomitant]
     Active Substance: RIBOCICLIB
     Dosage: 3 DF (08PM)
     Route: 065

REACTIONS (29)
  - Metastases to bone [Unknown]
  - Hepatic cancer [Unknown]
  - Burning sensation [Unknown]
  - Vomiting [Unknown]
  - Metastases to liver [Unknown]
  - Hip fracture [Unknown]
  - Pain in extremity [Unknown]
  - Dehydration [Unknown]
  - Pain [Recovered/Resolved]
  - Vein disorder [Unknown]
  - Asthenia [Unknown]
  - Weight decreased [Unknown]
  - Gastric disorder [Unknown]
  - Gastrointestinal pain [Unknown]
  - Malaise [Unknown]
  - Diarrhoea [Unknown]
  - Breast cancer [Unknown]
  - Vein rupture [Unknown]
  - Ageusia [Unknown]
  - Respiratory disorder [Unknown]
  - Discomfort [Unknown]
  - Nausea [Unknown]
  - Dysgeusia [Unknown]
  - Bone cancer [Unknown]
  - Pain [Unknown]
  - Movement disorder [Unknown]
  - Eating disorder [Unknown]
  - Bone pain [Unknown]
  - Somnolence [Unknown]

NARRATIVE: CASE EVENT DATE: 202101
